FAERS Safety Report 19219812 (Version 1)
Quarter: 2021Q2

REPORT INFORMATION
  Report Type: Spontaneous
  Country: GB (occurrence: GB)
  Receive Date: 20210506
  Receipt Date: 20210506
  Transmission Date: 20210717
  Serious: Yes (Hospitalization, Other)
  Sender: FDA-Public Use
  Company Number: GB-AUROBINDO-AUR-APL-2021-018309

PATIENT
  Age: 89 Year
  Sex: Female

DRUGS (2)
  1. ATENOLOL. [Concomitant]
     Active Substance: ATENOLOL
     Indication: HYPERTENSION
     Dosage: UNK
     Route: 065
     Dates: start: 202010
  2. ACICLOVIR [Suspect]
     Active Substance: ACYCLOVIR
     Indication: PRODUCT USED FOR UNKNOWN INDICATION
     Dosage: UNK
     Route: 065

REACTIONS (3)
  - Herpes zoster [Recovering/Resolving]
  - Dizziness [Recovering/Resolving]
  - Herpes zoster oticus [Not Recovered/Not Resolved]

NARRATIVE: CASE EVENT DATE: 20210408
